FAERS Safety Report 7826133-5 (Version None)
Quarter: 2011Q4

REPORT INFORMATION
  Report Type: 
  Country: None (occurrence: None)
  Receive Date: 20111019
  Receipt Date: 20110907
  Transmission Date: 20120403
  Serious: Yes (Hospitalization)
  Sender: FDA-Public Use
  Company Number: ES-AMGEN-ESPCT2011039451

PATIENT
  Age: 47 Year
  Sex: Female

DRUGS (8)
  1. ACETAMINOPHEN [Concomitant]
     Dosage: UNK UNK, TID
     Route: 048
     Dates: start: 20110713
  2. PANITUMUMAB [Suspect]
     Indication: COLORECTAL CANCER
     Dosage: 6 MG/KG, Q2WK
     Route: 042
     Dates: start: 20110622
  3. FLUOROURACIL [Concomitant]
     Indication: COLORECTAL CANCER
     Dosage: 4000 MG/M2, Q4WK
     Route: 042
     Dates: start: 20110622
  4. NALOXONE [Concomitant]
     Dosage: 10 MG, TID
     Route: 048
     Dates: start: 20110622
  5. MITOMICINA C [Concomitant]
     Indication: COLORECTAL CANCER
     Dosage: 10 MG/M2, Q4WK
     Route: 042
     Dates: start: 20110622
  6. IBUPROFEN [Concomitant]
     Dosage: 600 MG, TID
     Route: 048
     Dates: start: 20110608, end: 20110713
  7. OMEPRAZOLE [Concomitant]
  8. SYNALAR [Concomitant]
     Dosage: UNK UNK, TID
     Route: 061
     Dates: start: 20110727

REACTIONS (2)
  - THROMBOCYTOPENIA [None]
  - FEBRILE NEUTROPENIA [None]
